FAERS Safety Report 17143183 (Version 1)
Quarter: 2019Q4

REPORT INFORMATION
  Report Type: Spontaneous
  Country: US (occurrence: US)
  Receive Date: 20191212
  Receipt Date: 20191212
  Transmission Date: 20200122
  Serious: No
  Sender: FDA-Public Use
  Company Number: US-JNJFOC-20191208535

PATIENT
  Age: 40 Year
  Sex: Male
  Weight: 65.83 kg

DRUGS (1)
  1. STELARA [Suspect]
     Active Substance: USTEKINUMAB
     Indication: COLITIS ULCERATIVE
     Route: 042

REACTIONS (7)
  - Oral pain [Not Recovered/Not Resolved]
  - Swelling face [Unknown]
  - Influenza like illness [Recovered/Resolved]
  - Toothache [Unknown]
  - Rhinalgia [Not Recovered/Not Resolved]
  - Sinusitis [Unknown]
  - Pain in extremity [Recovered/Resolved]

NARRATIVE: CASE EVENT DATE: 20191110
